FAERS Safety Report 7600894-2 (Version None)
Quarter: 2011Q3

REPORT INFORMATION
  Report Type: 
  Country: None (occurrence: None)
  Receive Date: 20110711
  Receipt Date: 20110701
  Transmission Date: 20111222
  Serious: Yes (Hospitalization, Other)
  Sender: FDA-Public Use
  Company Number: US-ASTRAZENECA-2011SE39709

PATIENT
  Age: 70 Year
  Sex: Female
  Weight: 70 kg

DRUGS (7)
  1. TENORMIN [Suspect]
     Dosage: UNKNOWN DOSE DAILY
     Route: 048
     Dates: start: 20060319, end: 20070617
  2. PROTONIX [Concomitant]
     Dates: start: 20060109
  3. CARDIZEM CD [Concomitant]
     Dates: start: 20060214
  4. SYNTHROID [Concomitant]
     Dates: start: 20060518
  5. SUNITINIB MALATE [Suspect]
     Indication: RENAL CELL CARCINOMA
     Route: 048
     Dates: start: 20051017
  6. DYAZIDE [Concomitant]
     Dates: start: 20061102, end: 20070618
  7. SOLU-CORTEF [Concomitant]
     Dates: start: 20060214

REACTIONS (3)
  - HYPONATRAEMIA [None]
  - BRADYCARDIA [None]
  - FATIGUE [None]
